FAERS Safety Report 9991518 (Version 1)
Quarter: 2014Q1

REPORT INFORMATION
  Report Type: Spontaneous
  Country: US (occurrence: None)
  Receive Date: 20140123
  Receipt Date: 20140123
  Transmission Date: 20141002
  Serious: Yes (Hospitalization)
  Sender: FDA-Public Use
  Company Number: UTC-041082

PATIENT
  Age: 55 Year
  Sex: Female
  Weight: 94.1 kg

DRUGS (2)
  1. REMODULIN (5 MILLIGRAM/MILLILITERS, INJECTION FOR INFUSION) (TREPROSTINIL SODIUM) [Suspect]
     Indication: PULMONARY ARTERIAL HYPERTENSION
     Dosage: 109.44 UG/KG (0.076 UG/KG, 1 IN 1 MIN)
     Route: 041
     Dates: start: 20080717
  2. REVATIO (SILDENAFIL CITRATE) [Concomitant]

REACTIONS (2)
  - Injection site infection [None]
  - Fungal infection [None]
